FAERS Safety Report 18364251 (Version 1)
Quarter: 2020Q4

REPORT INFORMATION
  Report Type: Spontaneous
  Country: US (occurrence: US)
  Receive Date: 20201009
  Receipt Date: 20201009
  Transmission Date: 20210114
  Serious: Yes (Hospitalization)
  Sender: FDA-Public Use
  Company Number: US-HORIZON-ACT-0371-2020

PATIENT
  Age: 12 Year
  Sex: Male

DRUGS (1)
  1. ACTIMMUNE [Suspect]
     Active Substance: INTERFERON GAMMA-1B
     Indication: LYMPHADENITIS
     Route: 058

REACTIONS (3)
  - Pyrexia [Unknown]
  - Off label use [Unknown]
  - Headache [Unknown]
